FAERS Safety Report 4648329-6 (Version None)
Quarter: 2005Q2

REPORT INFORMATION
  Report Type: 
  Country: None (occurrence: None)
  Receive Date: 20050426
  Receipt Date: 20050426
  Transmission Date: 20051028
  Serious: Yes (Other)
  Sender: FDA-Public Use
  Company Number: None

PATIENT
  Age: 54 Year
  Sex: Male
  Weight: 77.1115 kg

DRUGS (5)
  1. FENTANYL [Suspect]
     Indication: COMPLEX REGIONAL PAIN SYNDROME
     Dosage: 75 MCG  TRANSDERMAL
     Route: 062
     Dates: start: 20050322
  2. WELLBUTRIN [Concomitant]
  3. DIOVAN [Concomitant]
  4. ZOLOFT [Concomitant]
  5. INSULIN [Concomitant]

REACTIONS (2)
  - APPLICATION SITE DERMATITIS [None]
  - THERAPEUTIC RESPONSE UNEXPECTED WITH DRUG SUBSTITUTION [None]
